FAERS Safety Report 5314708-7 (Version None)
Quarter: 2007Q2

REPORT INFORMATION
  Report Type: 
  Country: None (occurrence: None)
  Receive Date: 20070427
  Receipt Date: 20070411
  Transmission Date: 20071010
  Serious: Yes (Death)
  Sender: FDA-Public Use
  Company Number: 2007US000815

PATIENT
  Age: 55 Year
  Sex: Female

DRUGS (1)
  1. PROGRAF [Suspect]
     Indication: OFF LABEL USE
     Dosage: 0.075 MG/KG, BID, IV NOS
     Route: 042

REACTIONS (6)
  - BACTERIAL SEPSIS [None]
  - CYTOMEGALOVIRUS GASTROENTERITIS [None]
  - ENTERITIS INFECTIOUS [None]
  - FUNGAL SEPSIS [None]
  - INTESTINAL PERFORATION [None]
  - POOR VENOUS ACCESS [None]
